FAERS Safety Report 9571043 (Version 1)
Quarter: 2013Q3

REPORT INFORMATION
  Report Type: Spontaneous
  Country: US (occurrence: None)
  Receive Date: 20130927
  Receipt Date: 20130927
  Transmission Date: 20140515
  Serious: Yes (Other)
  Sender: FDA-Public Use
  Company Number: 2013US0002527

PATIENT
  Age: 83 Year
  Sex: Female
  Weight: 60.5 kg

DRUGS (11)
  1. PONATINIB [Suspect]
     Indication: CHRONIC MYELOID LEUKAEMIA
     Route: 048
     Dates: start: 20110630
  2. COREG [Concomitant]
  3. PROCARDIA [Concomitant]
  4. CLONIDINE HYDROCHLORIDE [Concomitant]
  5. LISINOPRIL [Concomitant]
  6. ACTONEL [Concomitant]
  7. HYDROCHLOROTHIAZIDE [Concomitant]
  8. PRILOSEC [Concomitant]
  9. CARDURA [Concomitant]
  10. LEVOTHYROXINE SODIUM [Concomitant]
  11. DIACOR [Concomitant]

REACTIONS (10)
  - Cerebrovascular accident [None]
  - Blood pressure increased [None]
  - Blood glucose increased [None]
  - Platelet count decreased [None]
  - Cerebral atrophy [None]
  - Cerebral ischaemia [None]
  - Mastoiditis [None]
  - Cerebral infarction [None]
  - Sinus bradycardia [None]
  - Electrocardiogram T wave inversion [None]
